FAERS Safety Report 6330116-4 (Version None)
Quarter: 2009Q3

REPORT INFORMATION
  Report Type: 
  Country: None (occurrence: None)
  Receive Date: 20090827
  Receipt Date: 20090821
  Transmission Date: 20100115
  Serious: Yes (Life-Threatening)
  Sender: FDA-Public Use
  Company Number: BE-BIOGENIDEC-2009BI026814

PATIENT
  Age: 42 Year
  Sex: Female

DRUGS (3)
  1. TYSABRI [Suspect]
     Indication: MULTIPLE SCLEROSIS
     Dates: start: 20081120, end: 20090703
  2. MELOXICAM [Concomitant]
     Indication: ANTIINFLAMMATORY THERAPY
     Dates: end: 20090831
  3. NITROFURANTOIN [Concomitant]
     Indication: ANTIBIOTIC PROPHYLAXIS
     Dates: start: 20090829, end: 20090831

REACTIONS (1)
  - HEPATITIS [None]
